FAERS Safety Report 8425440-5 (Version None)
Quarter: 2012Q2

REPORT INFORMATION
  Report Type: 
  Country: None (occurrence: None)
  Receive Date: 20120605
  Receipt Date: 20120531
  Transmission Date: 20120825
  Serious: Yes (Other)
  Sender: FDA-Public Use
  Company Number: GER/UKI/12/0024526

PATIENT
  Age: 46 Year
  Sex: Female
  Weight: 69 kg

DRUGS (8)
  1. ADCAL (CARBAZOCHROME) [Concomitant]
  2. AMLODIPINE BESYLATE [Concomitant]
  3. AMLODIPINE [Suspect]
     Indication: PRODUCT USED FOR UNKNOWN INDICATION
     Dosage: ORAL
     Route: 048
     Dates: start: 20120516
  4. ACETAMINOPHEN W/ CODEINE [Concomitant]
  5. AMLODIPINE BESYLATE [Concomitant]
  6. PREDNISOLONE [Concomitant]
  7. QVAR (BECLOMETASONE DIPROPIONAE) [Concomitant]
  8. SALBUTAMOL(SALBUAMOL) [Concomitant]

REACTIONS (2)
  - CONDITION AGGRAVATED [None]
  - ASTHMA [None]
